FAERS Safety Report 20757237 (Version 7)
Quarter: 2022Q3

REPORT INFORMATION
  Report Type: Report from Study
  Country: AU (occurrence: AU)
  Receive Date: 20220427
  Receipt Date: 20220930
  Transmission Date: 20221026
  Serious: Yes (Other)
  Sender: FDA-Public Use
  Company Number: AU-CELGENE-AUS-20220303660

PATIENT
  Age: 70 Year
  Sex: Male
  Weight: 90.30 kg

DRUGS (50)
  1. LENALIDOMIDE [Suspect]
     Active Substance: LENALIDOMIDE
     Indication: Plasma cell myeloma
     Dosage: 25 MILLIGRAM
     Route: 048
     Dates: start: 20180327, end: 20180402
  2. LENALIDOMIDE [Suspect]
     Active Substance: LENALIDOMIDE
     Dosage: 10 MILLIGRAM
     Route: 048
     Dates: start: 20211209, end: 20211229
  3. LENALIDOMIDE [Suspect]
     Active Substance: LENALIDOMIDE
     Dosage: 10 MILLIGRAM
     Route: 048
     Dates: start: 20220106
  4. DEXAMETHASONE [Suspect]
     Active Substance: DEXAMETHASONE
     Indication: Plasma cell myeloma
     Route: 042
     Dates: start: 20180327, end: 20180327
  5. DEXAMETHASONE [Suspect]
     Active Substance: DEXAMETHASONE
     Route: 042
     Dates: start: 20180330, end: 20180330
  6. ISATUXIMAB [Suspect]
     Active Substance: ISATUXIMAB
     Indication: Plasma cell myeloma
     Dosage: FREQUENCY TEXT: EVERY OTHER WEEK
     Route: 042
     Dates: start: 20180327, end: 20180327
  7. ISATUXIMAB [Suspect]
     Active Substance: ISATUXIMAB
     Dosage: FREQUENCY TEXT: EVERY OTHER WEEK
     Route: 042
     Dates: start: 20211209, end: 20211209
  8. ISATUXIMAB [Suspect]
     Active Substance: ISATUXIMAB
     Dosage: FREQUENCY TEXT: EVERY OTHER WEEK
     Route: 042
     Dates: start: 20220106, end: 20220106
  9. BORTEZOMIB [Suspect]
     Active Substance: BORTEZOMIB
     Indication: Plasma cell myeloma
     Dosage: FREQUENCY TEXT: NOT PROVIDED
     Route: 058
     Dates: start: 20180327, end: 20180327
  10. BORTEZOMIB [Suspect]
     Active Substance: BORTEZOMIB
     Dosage: FREQUENCY TEXT: NOT PROVIDED
     Route: 058
     Dates: start: 20180330, end: 20180330
  11. PANTOPRAZOLE SODIUM [Concomitant]
     Active Substance: PANTOPRAZOLE SODIUM
     Indication: Product used for unknown indication
  12. DOXYCYCLINE [Concomitant]
     Active Substance: DOXYCYCLINE
  13. DOXYCYCLINE [Concomitant]
     Active Substance: DOXYCYCLINE
  14. DOXYCYCLINE [Concomitant]
     Active Substance: DOXYCYCLINE
  15. DOXYCYCLINE [Concomitant]
     Active Substance: DOXYCYCLINE
  16. INTRAGAM P [Concomitant]
     Active Substance: HUMAN IMMUNOGLOBULIN G
  17. INTRAGAM P [Concomitant]
     Active Substance: HUMAN IMMUNOGLOBULIN G
     Indication: Product used for unknown indication
  18. INTRAGAM P [Concomitant]
     Active Substance: HUMAN IMMUNOGLOBULIN G
  19. INTRAGAM P [Concomitant]
     Active Substance: HUMAN IMMUNOGLOBULIN G
     Dosage: FREQUENCY TEXT: NOT PROVIDED
     Route: 065
     Dates: start: 20211005
  20. INTRAGAM P [Concomitant]
     Active Substance: HUMAN IMMUNOGLOBULIN G
  21. INTRAGAM P [Concomitant]
     Active Substance: HUMAN IMMUNOGLOBULIN G
  22. ECONAZOLE [Concomitant]
     Active Substance: ECONAZOLE
  23. ECONAZOLE [Concomitant]
     Active Substance: ECONAZOLE
     Indication: Product used for unknown indication
  24. ECONAZOLE [Concomitant]
     Active Substance: ECONAZOLE
  25. ECONAZOLE [Concomitant]
     Active Substance: ECONAZOLE
     Dosage: FREQUENCY TEXT: NOT PROVIDED
     Route: 065
     Dates: start: 20211122
  26. ECONAZOLE [Concomitant]
     Active Substance: ECONAZOLE
  27. LORATADINE [Concomitant]
     Active Substance: LORATADINE
  28. LORATADINE [Concomitant]
     Active Substance: LORATADINE
     Indication: Product used for unknown indication
  29. LORATADINE [Concomitant]
     Active Substance: LORATADINE
  30. LORATADINE [Concomitant]
     Active Substance: LORATADINE
     Route: 065
     Dates: start: 20211111, end: 20220106
  31. LORATADINE [Concomitant]
     Active Substance: LORATADINE
  32. OXYCODONE [Concomitant]
     Active Substance: OXYCODONE
  33. OXYCODONE [Concomitant]
     Active Substance: OXYCODONE
     Indication: Product used for unknown indication
     Dosage: FREQUENCY TEXT: NOT PROVIDED
     Route: 065
     Dates: start: 20180301, end: 20211210
  34. OXYCODONE [Concomitant]
     Active Substance: OXYCODONE
  35. ATENOLOL [Concomitant]
     Active Substance: ATENOLOL
  36. ATENOLOL [Concomitant]
     Active Substance: ATENOLOL
     Indication: Product used for unknown indication
     Dates: start: 20220718
  37. ATENOLOL [Concomitant]
     Active Substance: ATENOLOL
  38. VALACYCLOVIR HYDROCHLORIDE [Concomitant]
     Active Substance: VALACYCLOVIR HYDROCHLORIDE
  39. VALACYCLOVIR HYDROCHLORIDE [Concomitant]
     Active Substance: VALACYCLOVIR HYDROCHLORIDE
     Indication: Product used for unknown indication
  40. VALACYCLOVIR HYDROCHLORIDE [Concomitant]
     Active Substance: VALACYCLOVIR HYDROCHLORIDE
  41. VALACYCLOVIR HYDROCHLORIDE [Concomitant]
     Active Substance: VALACYCLOVIR HYDROCHLORIDE
     Dosage: FREQUENCY TEXT: NOT PROVIDED
     Route: 065
     Dates: start: 20180327
  42. VALACYCLOVIR HYDROCHLORIDE [Concomitant]
     Active Substance: VALACYCLOVIR HYDROCHLORIDE
     Route: 065
  43. VALACYCLOVIR HYDROCHLORIDE [Concomitant]
     Active Substance: VALACYCLOVIR HYDROCHLORIDE
  44. PSYLLIUM HUSKS [Concomitant]
     Active Substance: PSYLLIUM HUSK
  45. PSYLLIUM HUSKS [Concomitant]
     Active Substance: PSYLLIUM HUSK
     Indication: Product used for unknown indication
  46. PSYLLIUM HUSKS [Concomitant]
     Active Substance: PSYLLIUM HUSK
     Dosage: FREQUENCY TEXT: NOT PROVIDED
     Route: 065
     Dates: start: 20210301
  47. PSYLLIUM HUSKS [Concomitant]
     Active Substance: PSYLLIUM HUSK
  48. ROSUVASTATIN [Concomitant]
     Active Substance: ROSUVASTATIN
     Indication: Product used for unknown indication
     Dosage: FREQUENCY TEXT: NOT PROVIDED
     Route: 065
     Dates: start: 2012
  49. APIXABAN [Concomitant]
     Active Substance: APIXABAN
     Indication: Product used for unknown indication
     Dosage: FREQUENCY TEXT: NOT PROVIDED
     Route: 065
     Dates: start: 20190121
  50. ACETAMINOPHEN [Concomitant]
     Active Substance: ACETAMINOPHEN
     Indication: Product used for unknown indication
     Dates: start: 20211111, end: 20220106

REACTIONS (3)
  - Bowen^s disease [Recovered/Resolved]
  - Malignant melanoma in situ [Recovered/Resolved]
  - Squamous cell carcinoma of skin [Recovered/Resolved]

NARRATIVE: CASE EVENT DATE: 20211126
